FAERS Safety Report 23528378 (Version 12)
Quarter: 2025Q1

REPORT INFORMATION
  Report Type: Spontaneous
  Country: US (occurrence: US)
  Receive Date: 20240215
  Receipt Date: 20250124
  Transmission Date: 20250408
  Serious: Yes (Other)
  Sender: BRISTOL-MYERS SQUIBB COMPANY
  Company Number: US-BRISTOL-MYERS SQUIBB COMPANY-2024-024510

PATIENT
  Age: 68 Year
  Sex: Female

DRUGS (8)
  1. POMALYST [Suspect]
     Active Substance: POMALIDOMIDE
     Indication: Plasma cell myeloma in remission
     Dosage: TAKE 1 CAPSULE BY MOUTH EVERY DAY ON DAYS 1-21 OF EACH 28 DAY CYCLE
     Route: 048
     Dates: start: 20220830
  2. POMALYST [Suspect]
     Active Substance: POMALIDOMIDE
     Indication: Plasma cell myeloma
     Dosage: TAKE 1 CAPSULE BY MOUTH EVERY DAY FOR 14 DAYS ON AND 14 DAYS OFF EACH 28 DAY CYCLE
     Route: 048
  3. POMALYST [Suspect]
     Active Substance: POMALIDOMIDE
     Dosage: TAKE 1 CAPSULE BY MOUTH DAILY ON DAYS 1-14 OF EACH 28 DAY CYCLE
     Route: 048
  4. POMALYST [Suspect]
     Active Substance: POMALIDOMIDE
     Dosage: TAKE 1 CAPSULE BY MOUTH DAILY ON DAYS 1-14 OF EACH 28 DAY CYCLE.
     Route: 048
  5. POMALYST [Suspect]
     Active Substance: POMALIDOMIDE
     Dosage: TAKE 1 CAPSULE BY MOUTH EVERY OTHER DAY
     Route: 048
  6. POMALYST [Suspect]
     Active Substance: POMALIDOMIDE
     Route: 048
  7. POMALYST [Suspect]
     Active Substance: POMALIDOMIDE
  8. POMALYST [Suspect]
     Active Substance: POMALIDOMIDE
     Dosage: TAKE 1 CAPSULE BY MOUTH EVERY OTHER DAY ON DAYS 1-21 OF EACH 28 DAY CYCLE
     Route: 048

REACTIONS (14)
  - Full blood count decreased [Recovering/Resolving]
  - Diarrhoea [Not Recovered/Not Resolved]
  - Off label use [Unknown]
  - Product supply issue [Unknown]
  - Therapy interrupted [Unknown]
  - Hypersensitivity [Not Recovered/Not Resolved]
  - Oedema peripheral [Not Recovered/Not Resolved]
  - Atrial fibrillation [Not Recovered/Not Resolved]
  - White blood cell count decreased [Not Recovered/Not Resolved]
  - Constipation [Not Recovered/Not Resolved]
  - Incontinence [Not Recovered/Not Resolved]
  - Peripheral swelling [Recovering/Resolving]
  - Product dose omission issue [Unknown]
  - Laboratory test abnormal [Recovering/Resolving]

NARRATIVE: CASE EVENT DATE: 20240315
